FAERS Safety Report 6191328-6 (Version None)
Quarter: 2009Q2

REPORT INFORMATION
  Report Type: 
  Country: None (occurrence: None)
  Receive Date: 20090513
  Receipt Date: 20090513
  Transmission Date: 20091009
  Serious: No
  Sender: FDA-Public Use
  Company Number: None

PATIENT
  Age: 68 Year
  Sex: Female
  Weight: 56.246 kg

DRUGS (1)
  1. METOPROLOL SUCCINATE EXTENDED RELEASE [Suspect]
     Indication: BLOOD PRESSURE
     Dosage: 100 MG 1 A DAY
     Dates: start: 20090310, end: 20090410

REACTIONS (6)
  - ANXIETY [None]
  - BRADYPHRENIA [None]
  - HEART RATE INCREASED [None]
  - HYPOTENSION [None]
  - INSOMNIA [None]
  - THINKING ABNORMAL [None]
